FAERS Safety Report 24963863 (Version 1)
Quarter: 2025Q1

REPORT INFORMATION
  Report Type: Spontaneous
  Country: US (occurrence: US)
  Receive Date: 20250213
  Receipt Date: 20250213
  Transmission Date: 20250409
  Serious: No
  Sender: DR REDDYS
  Company Number: US-DRL-USA-USA/2025/01/001602

PATIENT
  Age: 35 Year
  Sex: Female
  Weight: 83.91 kg

DRUGS (4)
  1. JAVYGTOR [Suspect]
     Active Substance: SAPROPTERIN DIHYDROCHLORIDE
     Indication: Phenylketonuria
     Dosage: TOTAL DOSE OF 1600 MG DISSOLVE ONE 100 MG POWDER PACKET ALONG WITH THREE 500 MG POWDER PACKETS IN 4
     Route: 048
  2. JAVYGTOR [Suspect]
     Active Substance: SAPROPTERIN DIHYDROCHLORIDE
     Indication: Hyperphenylalaninaemia
  3. JAVYGTOR [Suspect]
     Active Substance: SAPROPTERIN DIHYDROCHLORIDE
     Indication: Phenylketonuria
     Dosage: TOTAL DOSE OF 1600 MG , DISSOLVE ONE 100 MG POWDER PACKET ALONG WITH THREE 500 MG POWDER PACKETS IN
     Route: 048
  4. JAVYGTOR [Suspect]
     Active Substance: SAPROPTERIN DIHYDROCHLORIDE
     Indication: Hyperphenylalaninaemia

REACTIONS (1)
  - Inappropriate schedule of product administration [Unknown]
